FAERS Safety Report 9902775 (Version 2)
Quarter: 2014Q1

REPORT INFORMATION
  Report Type: Spontaneous
  Country: US (occurrence: US)
  Receive Date: 20140217
  Receipt Date: 20140226
  Transmission Date: 20141002
  Serious: No
  Sender: FDA-Public Use
  Company Number: US-PFIZER INC-2014043844

PATIENT
  Age: 65 Year
  Sex: Female
  Weight: 111 kg

DRUGS (2)
  1. LYRICA [Suspect]
     Indication: FIBROMYALGIA
     Dosage: UNK
     Dates: start: 20131223, end: 201402
  2. OMEPRAZOLE [Concomitant]
     Indication: GASTROOESOPHAGEAL REFLUX DISEASE
     Dosage: UNK

REACTIONS (5)
  - Herpes zoster [Not Recovered/Not Resolved]
  - Alopecia [Recovered/Resolved]
  - Hair disorder [Recovered/Resolved]
  - Swelling [Not Recovered/Not Resolved]
  - Weight decreased [Unknown]
